FAERS Safety Report 6182859-3 (Version None)
Quarter: 2009Q2

REPORT INFORMATION
  Report Type: 
  Country: None (occurrence: None)
  Receive Date: 20090505
  Receipt Date: 20090429
  Transmission Date: 20091009
  Serious: Yes (Other)
  Sender: FDA-Public Use
  Company Number: ADE2009-0591

PATIENT
  Age: 62 Year
  Sex: Male

DRUGS (3)
  1. SIMVASTATIN [Suspect]
     Indication: HYPERLIPIDAEMIA
     Dosage: 40MG-ORAL
     Route: 048
     Dates: start: 20090105, end: 20090409
  2. ATORVASATATIN [Concomitant]
  3. HUMULIN INSULIN [Concomitant]

REACTIONS (1)
  - HYPOGLYCAEMIA [None]
